FAERS Safety Report 6588373-5 (Version None)
Quarter: 2010Q1

REPORT INFORMATION
  Report Type: 
  Country: None (occurrence: None)
  Receive Date: 20100218
  Receipt Date: 20100204
  Transmission Date: 20100710
  Serious: Yes (Hospitalization)
  Sender: FDA-Public Use
  Company Number: BR-ROCHE-684109

PATIENT
  Age: 26 Year
  Sex: Female

DRUGS (2)
  1. ROACUTAN [Suspect]
     Indication: ACNE
     Dosage: INDICATION: ACNE THAT USED TO OCCUR ON MENSES PERIOD OTHER INDICATION: OILY SKIN
     Route: 048
     Dates: start: 20040101
  2. PROTOPIC [Suspect]
     Route: 061

REACTIONS (3)
  - DRUG INEFFECTIVE [None]
  - NEUROFIBROMATOSIS [None]
  - SEBORRHOEIC DERMATITIS [None]
